FAERS Safety Report 12857679 (Version 1)
Quarter: 2016Q4

REPORT INFORMATION
  Report Type: Other
  Country: JP (occurrence: JP)
  Receive Date: 20161018
  Receipt Date: 20161018
  Transmission Date: 20170207
  Serious: Yes (Life-Threatening)
  Sender: FDA-Public Use
  Company Number: JP-ACIC FINE CHEMICALS INC-1058480

PATIENT
  Age: 33 Year
  Sex: Female

DRUGS (2)
  1. RECOMBINANT FACTOR-VIIA [Concomitant]
  2. TRANEXAMIC ACID. [Suspect]
     Active Substance: TRANEXAMIC ACID
     Indication: POSTPARTUM HAEMORRHAGE

REACTIONS (1)
  - Pulmonary embolism [Recovered/Resolved]
